FAERS Safety Report 19154947 (Version 1)
Quarter: 2021Q2

REPORT INFORMATION
  Report Type: Spontaneous
  Country: AR (occurrence: AR)
  Receive Date: 20210419
  Receipt Date: 20210419
  Transmission Date: 20210717
  Serious: Yes (Other)
  Sender: FDA-Public Use
  Company Number: AR-009507513-2104ARG003952

PATIENT
  Age: 28 Year
  Sex: Female

DRUGS (2)
  1. EMTRICITABINE (+) TENOFOVIR DISOPROXIL FUMARATE [Suspect]
     Active Substance: EMTRICITABINE\TENOFOVIR DISOPROXIL
     Dosage: START DATE: APRIL 2020 +/? 1 MONTH
  2. ISENTRESS [Suspect]
     Active Substance: RALTEGRAVIR POTASSIUM
     Dosage: START DATE: APRIL 2020 +/? 1 MONTH

REACTIONS (7)
  - Skin reaction [Recovered/Resolved]
  - Gastrointestinal disorder [Unknown]
  - Erythema [Recovered/Resolved]
  - Syphilis [Unknown]
  - Nausea [Recovered/Resolved]
  - Vomiting [Recovered/Resolved]
  - Maternal exposure during pregnancy [Unknown]

NARRATIVE: CASE EVENT DATE: 201910
